FAERS Safety Report 15048134 (Version 3)
Quarter: 2018Q4

REPORT INFORMATION
  Report Type: Spontaneous
  Country: PT (occurrence: PT)
  Receive Date: 20180622
  Receipt Date: 20181001
  Transmission Date: 20190204
  Serious: Yes (Hospitalization)
  Sender: FDA-Public Use
  Company Number: PT-009507513-1806PRT007804

PATIENT
  Age: 72 Year
  Sex: Female
  Weight: 57 kg

DRUGS (11)
  1. MOMETASONE FUROATE. [Suspect]
     Active Substance: MOMETASONE FUROATE
     Indication: NASAL POLYPS
     Dosage: 400 MICROGRAM, QD
     Route: 045
     Dates: start: 20170410
  2. PLACEBO [Suspect]
     Active Substance: UNSPECIFIED INGREDIENT
     Indication: NASAL POLYPS
     Dosage: 2 ML,1X; IN TOTAL
     Route: 058
     Dates: start: 20170518, end: 20180322
  3. CHOLECALCIFEROL [Concomitant]
     Active Substance: CHOLECALCIFEROL
     Indication: PROPHYLAXIS
     Dosage: 22400 IU, QD
     Route: 048
     Dates: start: 20171102
  4. FLUTIFORM [Concomitant]
     Active Substance: FLUTICASONE PROPIONATE\FORMOTEROL FUMARATE
     Indication: ASTHMA
     Dosage: 1000/40 MICROGRAM, QD
     Route: 055
     Dates: start: 2016, end: 20180214
  5. SINGULAIR [Concomitant]
     Active Substance: MONTELUKAST SODIUM
     Indication: ASTHMA
     Dosage: 10 MG,QD
     Route: 048
     Dates: start: 2002
  6. MOMETASONE FUROATE. [Suspect]
     Active Substance: MOMETASONE FUROATE
     Dosage: 400 MICROGRAM, QD
     Route: 045
     Dates: start: 20170420, end: 20180327
  7. SODIUM CHLORIDE. [Concomitant]
     Active Substance: SODIUM CHLORIDE
     Indication: NASAL CONGESTION
     Dosage: UNK UNK,QD
     Route: 045
     Dates: start: 20170410
  8. LEVOTHYROXINE SODIUM. [Concomitant]
     Active Substance: LEVOTHYROXINE SODIUM
     Indication: HYPOTHYROIDISM
     Dosage: 100 MICROGRAM, QD
     Route: 048
     Dates: start: 2002
  9. TIOTROPIUM BROMIDE [Concomitant]
     Active Substance: TIOTROPIUM BROMIDE
     Dosage: UNK
  10. UNICONTIN [Concomitant]
     Indication: ASTHMA
     Dosage: 400 MG,QD
     Route: 048
     Dates: start: 2002
  11. TIOTROPIUM BROMIDE [Concomitant]
     Active Substance: TIOTROPIUM BROMIDE
     Indication: ASTHMA
     Dosage: 2 DF,QD
     Route: 055
     Dates: start: 2016, end: 20180327

REACTIONS (1)
  - Chronic sinusitis [Recovered/Resolved]

NARRATIVE: CASE EVENT DATE: 20180222
